FAERS Safety Report 10186132 (Version 1)
Quarter: 2014Q2

REPORT INFORMATION
  Report Type: Spontaneous
  Country: CL (occurrence: CL)
  Receive Date: 20140521
  Receipt Date: 20140521
  Transmission Date: 20141212
  Serious: Yes (Other)
  Sender: FDA-Public Use
  Company Number: CL-PFIZER INC-2014135931

PATIENT
  Age: 81 Year
  Sex: Male

DRUGS (5)
  1. LYRICA [Suspect]
     Dosage: 75 MG, 1X/DAY
  2. XALATAN [Suspect]
  3. CONCOR [Concomitant]
  4. CARDIOASPIRINA [Concomitant]
  5. LEXOTANIL [Concomitant]
     Dosage: 3 MG, UNK

REACTIONS (1)
  - Deafness [Unknown]
